FAERS Safety Report 14709129 (Version 1)
Quarter: 2018Q2

REPORT INFORMATION
  Report Type: Spontaneous
  Country: US (occurrence: US)
  Receive Date: 20180403
  Receipt Date: 20180403
  Transmission Date: 20180711
  Serious: Yes (Other)
  Sender: FDA-Public Use
  Company Number: US-SA-2018SA089965

PATIENT

DRUGS (3)
  1. AUBAGIO [Suspect]
     Active Substance: TERIFLUNOMIDE
     Route: 048
     Dates: start: 2018
  2. TOPIRAMATE. [Concomitant]
     Active Substance: TOPIRAMATE
     Indication: NEURALGIA
  3. LEVETIRACETAM. [Concomitant]
     Active Substance: LEVETIRACETAM
     Indication: NEURALGIA

REACTIONS (5)
  - Sleep disorder [Unknown]
  - Condition aggravated [Unknown]
  - Intentional self-injury [Unknown]
  - Discomfort [Unknown]
  - Neuralgia [Unknown]

NARRATIVE: CASE EVENT DATE: 2018
